FAERS Safety Report 9634269 (Version 1)
Quarter: 2013Q4

REPORT INFORMATION
  Report Type: Spontaneous
  Country: US (occurrence: US)
  Receive Date: 20131021
  Receipt Date: 20131021
  Transmission Date: 20140711
  Serious: Yes (Other)
  Sender: FDA-Public Use
  Company Number: US-PFIZER INC-2013296682

PATIENT
  Age: 11 Year
  Sex: Female
  Weight: 39 kg

DRUGS (7)
  1. GENOTROPIN [Suspect]
     Indication: GROWTH HORMONE DEFICIENCY
     Dosage: 1.0 MG, 1X/DAY
     Route: 058
     Dates: start: 2013, end: 201309
  2. GENOTROPIN [Suspect]
     Dosage: 1.3 MG, 1X/DAY
     Route: 058
     Dates: start: 201309, end: 201309
  3. GENOTROPIN [Suspect]
     Dosage: (UNKNOWN DOSE WITH 12 MG CARTDRIGES), UNK
     Route: 058
     Dates: start: 201309
  4. DEPAKOTE [Concomitant]
     Indication: CONVULSION
     Dosage: UNK
  5. CARBAMAZEPINE [Concomitant]
     Dosage: UNK
  6. KEPPRA [Concomitant]
     Indication: CONVULSION
     Dosage: UNK
     Dates: end: 201308
  7. STRATTERA [Concomitant]
     Indication: ATTENTION DEFICIT/HYPERACTIVITY DISORDER
     Dosage: UNK
     Dates: end: 201308

REACTIONS (4)
  - Convulsion [Not Recovered/Not Resolved]
  - Loss of consciousness [Unknown]
  - Drug dispensing error [Unknown]
  - Incorrect dose administered [Unknown]
